FAERS Safety Report 8513712-5 (Version None)
Quarter: 2012Q3

REPORT INFORMATION
  Report Type: 
  Country: None (occurrence: None)
  Receive Date: 20120717
  Receipt Date: 20120710
  Transmission Date: 20120928
  Serious: No
  Sender: FDA-Public Use
  Company Number: US-PFIZER INC-2012166626

PATIENT
  Sex: Male

DRUGS (1)
  1. GENOTROPIN [Suspect]
     Dosage: UNK

REACTIONS (4)
  - IRRITABILITY [None]
  - BLOOD GLUCOSE INCREASED [None]
  - FATIGUE [None]
  - GLUCOSE TOLERANCE IMPAIRED [None]
